FAERS Safety Report 9723396 (Version 1)
Quarter: 2013Q4

REPORT INFORMATION
  Report Type: Spontaneous
  Country: US (occurrence: US)
  Receive Date: 20131202
  Receipt Date: 20131202
  Transmission Date: 20140711
  Serious: Yes (Other)
  Sender: FDA-Public Use
  Company Number: US-BRISTOL-MYERS SQUIBB COMPANY-19841550

PATIENT
  Age: 21 Year
  Sex: Female

DRUGS (4)
  1. ABILIFY [Suspect]
     Indication: BIPOLAR DISORDER
  2. AUGMENTIN [Concomitant]
  3. CEFZIL [Concomitant]
  4. PERCOCET [Concomitant]

REACTIONS (3)
  - Bunion [Unknown]
  - Dyskinesia [Unknown]
  - Somnolence [Unknown]
